FAERS Safety Report 7485508-7 (Version None)
Quarter: 2011Q2

REPORT INFORMATION
  Report Type: 
  Country: None (occurrence: None)
  Receive Date: 20110516
  Receipt Date: 20110516
  Transmission Date: 20111010
  Serious: Yes (Life-Threatening)
  Sender: FDA-Public Use
  Company Number: None

PATIENT
  Age: 36 Year
  Sex: Female
  Weight: 57 kg

DRUGS (4)
  1. INDOMETHACIN [Suspect]
  2. OFLOXACIN [Suspect]
  3. SYSTANE [Suspect]
  4. TOBRADEX [Suspect]

REACTIONS (5)
  - CRYING [None]
  - TREMOR [None]
  - DYSPNOEA [None]
  - HEART RATE ABNORMAL [None]
  - ANGER [None]
